FAERS Safety Report 7459799-2 (Version None)
Quarter: 2011Q2

REPORT INFORMATION
  Report Type: 
  Country: None (occurrence: None)
  Receive Date: 20110504
  Receipt Date: 20110504
  Transmission Date: 20111010
  Serious: Yes (Hospitalization, Other)
  Sender: FDA-Public Use
  Company Number: None

PATIENT
  Sex: Female
  Weight: 68.0396 kg

DRUGS (1)
  1. HUMIRA [Suspect]
     Indication: CROHN'S DISEASE
     Dosage: 40 MG Q 7-14 DAYS IM
     Route: 030
     Dates: start: 20100801, end: 20101123

REACTIONS (4)
  - PANCREATITIS [None]
  - PAIN [None]
  - PUSTULAR PSORIASIS [None]
  - INJURY [None]
